FAERS Safety Report 10331766 (Version 4)
Quarter: 2014Q3

REPORT INFORMATION
  Report Type: Report from Study
  Country: JP (occurrence: JP)
  Receive Date: 20140722
  Receipt Date: 20140806
  Transmission Date: 20150326
  Serious: Yes (Hospitalization)
  Sender: FDA-Public Use
  Company Number: PHHO2014JP004283

PATIENT
  Age: 55 Year
  Sex: Male
  Weight: 86 kg

DRUGS (18)
  1. DOCETAXEL [Suspect]
     Active Substance: DOCETAXEL
     Indication: NON-SMALL CELL LUNG CANCER
     Dosage: 75 MG/M2, UNK
     Route: 042
     Dates: start: 20140219, end: 20140219
  2. BUSCOPAN [Concomitant]
     Active Substance: BUTYLSCOPOLAMINE BROMIDE
     Indication: ABDOMINAL PAIN UPPER
     Dosage: UNK
     Route: 048
     Dates: start: 20140625
  3. ROHYPNOL [Concomitant]
     Active Substance: FLUNITRAZEPAM
     Indication: INSOMNIA
     Dosage: 1 MG, UNK
     Route: 048
     Dates: start: 20111215
  4. LANSOPRAZOLE. [Concomitant]
     Active Substance: LANSOPRAZOLE
     Indication: GASTRITIS PROPHYLAXIS
     Dosage: 15 MG, UNK
     Route: 048
     Dates: start: 20131007
  5. LOPENA [Concomitant]
     Indication: DIARRHOEA
     Dosage: UNK
     Route: 048
     Dates: start: 20140622
  6. BIOFERMIN R [Concomitant]
     Active Substance: BACILLUS SUBTILIS\LACTOBACILLUS ACIDOPHILUS\STREPTOCOCCUS FAECAIS
     Indication: DIARRHOEA
     Dosage: 18 MG, UNK
     Route: 048
     Dates: start: 20130919
  7. AMLODIPINE [Concomitant]
     Active Substance: AMLODIPINE BESYLATE
     Indication: HYPERTENSION
     Dosage: 2.5 MG, UNK
     Route: 048
     Dates: start: 20130903
  8. LOXOPROFEN [Concomitant]
     Active Substance: LOXOPROFEN
     Indication: MYALGIA
     Dosage: UNK
     Route: 048
     Dates: start: 20140315
  9. HUSCODE [Concomitant]
     Active Substance: CHLORPHENIRAMINE MALEAT\DIHYDROCODEINE PHOSPHATE\METHYLEPHEDRINE HYDROCHLORIDE, DL-
     Indication: COUGH
     Dosage: UNK
     Route: 048
     Dates: start: 20140423
  10. LDK378 [Suspect]
     Active Substance: CERITINIB
     Dosage: 750 MG DAILY
     Route: 048
     Dates: start: 20140620, end: 20140712
  11. DOCETAXEL [Suspect]
     Active Substance: DOCETAXEL
     Dosage: 41 MG/M2, UNK
     Route: 042
     Dates: start: 20140428, end: 20140428
  12. DOCETAXEL [Suspect]
     Active Substance: DOCETAXEL
     Dosage: 55 MG/M2, UNK
     Route: 042
     Dates: start: 20140312, end: 20140312
  13. DOMPERIDONE [Concomitant]
     Active Substance: DOMPERIDONE
     Indication: DIARRHOEA
     Dosage: 90 MG, UNK
     Route: 048
     Dates: start: 20140223
  14. DOCETAXEL [Suspect]
     Active Substance: DOCETAXEL
     Dosage: 41 MG/M2, UNK
     Route: 042
     Dates: start: 20140407, end: 20140407
  15. LDK378 [Suspect]
     Active Substance: CERITINIB
     Indication: NON-SMALL CELL LUNG CANCER
     Dosage: UNK
     Route: 048
     Dates: start: 20140219, end: 20140312
  16. ALLOPURINOL. [Concomitant]
     Active Substance: ALLOPURINOL
     Indication: HYPERURICAEMIA
     Dosage: 200 MG, UNK
     Route: 048
  17. BIO-THREE [Concomitant]
     Active Substance: HERBALS
     Indication: DIARRHOEA
     Dosage: 3 DF, UNK
     Route: 048
     Dates: start: 20140423
  18. GENTACIN [Concomitant]
     Active Substance: GENTAMICIN SULFATE
     Indication: DIARRHOEA
     Dosage: UNK
     Dates: start: 20131228

REACTIONS (2)
  - Infection [Recovered/Resolved]
  - Febrile neutropenia [Recovered/Resolved]

NARRATIVE: CASE EVENT DATE: 20140322
